FAERS Safety Report 19454850 (Version 6)
Quarter: 2023Q1

REPORT INFORMATION
  Report Type: Spontaneous
  Country: US (occurrence: US)
  Receive Date: 20210623
  Receipt Date: 20230322
  Transmission Date: 20230417
  Serious: Yes (Other)
  Sender: FDA-Public Use
  Company Number: US-PFIZER INC-2020328086

PATIENT
  Age: 55 Year
  Sex: Male

DRUGS (2)
  1. EUCRISA [Suspect]
     Active Substance: CRISABOROLE
     Dosage: 100 G
  2. EUCRISA [Suspect]
     Active Substance: CRISABOROLE
     Dosage: 100 G (APPLY TO AFFECTED AREA OF HANDS AND FACE)

REACTIONS (10)
  - Bone cyst [Unknown]
  - Knee arthroplasty [Unknown]
  - Spinal disorder [Unknown]
  - Arthritis [Unknown]
  - Hypoacusis [Unknown]
  - Sensitivity to weather change [Unknown]
  - Peripheral swelling [Unknown]
  - Malaise [Unknown]
  - Seasonal allergy [Unknown]
  - Sinus disorder [Unknown]
